FAERS Safety Report 5584087-9 (Version None)
Quarter: 2008Q1

REPORT INFORMATION
  Report Type: 
  Country: None (occurrence: None)
  Receive Date: 20080104
  Receipt Date: 20080104
  Transmission Date: 20080703
  Serious: Yes (Hospitalization)
  Sender: FDA-Public Use
  Company Number: None

PATIENT
  Age: 63 Year
  Sex: Male
  Weight: 125 kg

DRUGS (2)
  1. GLEEVEC [Suspect]
     Indication: OSTEOSARCOMA METASTATIC
     Dosage: 300MG BID D 1-4 WKLY
  2. PACLITAXEL [Suspect]
     Indication: OSTEOSARCOMA METASTATIC
     Dosage: 186 MG D3 D10 D17

REACTIONS (8)
  - ASTHENIA [None]
  - BALANCE DISORDER [None]
  - DECREASED APPETITE [None]
  - DYSPNOEA [None]
  - METASTASES TO CENTRAL NERVOUS SYSTEM [None]
  - NAUSEA [None]
  - TREMOR [None]
  - VOMITING [None]
